FAERS Safety Report 10276744 (Version 1)
Quarter: 2014Q3

REPORT INFORMATION
  Report Type: Spontaneous
  Country: US (occurrence: None)
  Receive Date: 20140701
  Receipt Date: 20140701
  Transmission Date: 20150326
  Serious: Yes (Hospitalization)
  Sender: FDA-Public Use
  Company Number: None

PATIENT
  Age: 68 Year
  Sex: Female

DRUGS (10)
  1. VITAMIN D3 [Concomitant]
     Active Substance: CHOLECALCIFEROL
  2. ALLOPURINOL. [Concomitant]
     Active Substance: ALLOPURINOL
  3. IRON [Concomitant]
     Active Substance: IRON
  4. RENVELA [Concomitant]
     Active Substance: SEVELAMER CARBONATE
  5. CARVEDILOL. [Concomitant]
     Active Substance: CARVEDILOL
  6. ALPHA LIPOIC ACID [Concomitant]
     Active Substance: .ALPHA.-LIPOIC ACID
  7. CALCITRIOL. [Concomitant]
     Active Substance: CALCITRIOL
  8. PROLIA [Suspect]
     Active Substance: DENOSUMAB
  9. PROPAFENONE. [Concomitant]
     Active Substance: PROPAFENONE
  10. NORCO [Concomitant]
     Active Substance: ACETAMINOPHEN\HYDROCODONE BITARTRATE

REACTIONS (7)
  - Chest pain [None]
  - Vomiting [None]
  - Asthenia [None]
  - Pyrexia [None]
  - Hypocalcaemia [None]
  - Nausea [None]
  - Hypotension [None]

NARRATIVE: CASE EVENT DATE: 20140404
